FAERS Safety Report 6193927-4 (Version None)
Quarter: 2009Q2

REPORT INFORMATION
  Report Type: 
  Country: None (occurrence: None)
  Receive Date: 20090518
  Receipt Date: 20090504
  Transmission Date: 20091009
  Serious: Yes (Hospitalization, Other)
  Sender: FDA-Public Use
  Company Number: PHHY2009BE16448

PATIENT
  Sex: Female

DRUGS (7)
  1. ALISKIREN ALI+ [Suspect]
     Indication: HYPERTENSION
     Dosage: 150 MG
     Route: 048
     Dates: start: 20090101, end: 20090301
  2. SERETIDE ^ALLEN + HANBURYS LTD^ [Concomitant]
  3. OMEPRAZOLE [Concomitant]
  4. LORAZEPAM [Concomitant]
  5. VALTRAN [Concomitant]
  6. ACETAMINOPHEN [Concomitant]
  7. TRAZOLAN [Concomitant]

REACTIONS (8)
  - DEHYDRATION [None]
  - DIARRHOEA [None]
  - DRUG INEFFECTIVE [None]
  - GASTROENTERITIS [None]
  - HYPERTENSION [None]
  - MALAISE [None]
  - RENAL FAILURE [None]
  - VOMITING [None]
